FAERS Safety Report 11442116 (Version 1)
Quarter: 2015Q3

REPORT INFORMATION
  Report Type: Spontaneous
  Country: US (occurrence: US)
  Receive Date: 20150901
  Receipt Date: 20150901
  Transmission Date: 20151125
  Serious: Yes (Other)
  Sender: FDA-Public Use
  Company Number: US-ASTRAZENECA-2015SE83447

PATIENT
  Sex: Female
  Weight: 59.9 kg

DRUGS (1)
  1. TUDORZA PRESSAIR [Suspect]
     Active Substance: ACLIDINIUM BROMIDE
     Indication: CHRONIC OBSTRUCTIVE PULMONARY DISEASE
     Route: 055
     Dates: start: 20150718

REACTIONS (4)
  - Visual acuity reduced [Unknown]
  - Intentional product misuse [Unknown]
  - Product quality issue [Unknown]
  - Lung neoplasm malignant [Unknown]
